FAERS Safety Report 6999480-7 (Version None)
Quarter: 2010Q3

REPORT INFORMATION
  Report Type: 
  Country: None (occurrence: None)
  Receive Date: 20100920
  Receipt Date: 20070712
  Transmission Date: 20110219
  Serious: Yes (Other)
  Sender: FDA-Public Use
  Company Number: US-ASTRAZENECA-2006UW24891

PATIENT
  Age: 50 Year
  Sex: Female
  Weight: 109.8 kg

DRUGS (10)
  1. SEROQUEL [Suspect]
     Indication: AFFECTIVE DISORDER
     Route: 048
     Dates: start: 20040101
  2. SEROQUEL [Suspect]
     Dosage: 25 TO 100 MG
     Route: 048
     Dates: start: 20050922
  3. HALDOL [Concomitant]
  4. RISPERDAL [Concomitant]
  5. ZOLOFT [Concomitant]
     Dosage: 100 TO 150 MG
     Dates: start: 19990708
  6. TRAZODONE HCL [Concomitant]
     Dates: start: 20050922
  7. NEURONTIN [Concomitant]
     Dosage: 200 TO 1200 MG
     Dates: start: 19990708
  8. LASIX [Concomitant]
     Dosage: 20 MG TO 40 MG
     Dates: start: 19990708
  9. DIOVAN [Concomitant]
     Dosage: 160/12.5 MG DAILY
     Dates: start: 20050623
  10. LIPITOR [Concomitant]
     Dates: start: 20060623

REACTIONS (3)
  - DIABETES MELLITUS INADEQUATE CONTROL [None]
  - DIABETIC KETOACIDOSIS [None]
  - TYPE 2 DIABETES MELLITUS [None]
